FAERS Safety Report 8834847 (Version 1)
Quarter: 2012Q4

REPORT INFORMATION
  Report Type: Spontaneous
  Country: GB (occurrence: None)
  Receive Date: 20121009
  Receipt Date: 20121009
  Transmission Date: 20130627
  Serious: Yes (Other)
  Sender: FDA-Public Use
  Company Number: 2012SUN00079

PATIENT
  Age: 60 Year
  Sex: Male

DRUGS (1)
  1. BACLOFEN [Suspect]
     Indication: MUSCLE STIFFNESS
     Dosage: 1 week,

REACTIONS (5)
  - Gait disturbance [None]
  - Eating disorder [None]
  - Dysarthria [None]
  - Dysphagia [None]
  - Feeling of relaxation [None]
